FAERS Safety Report 19126252 (Version 1)
Quarter: 2021Q2

REPORT INFORMATION
  Report Type: Spontaneous
  Country: CN (occurrence: CN)
  Receive Date: 20210413
  Receipt Date: 20210413
  Transmission Date: 20210717
  Serious: Yes (Other)
  Sender: FDA-Public Use
  Company Number: CN-ASTRAZENECA-2021A281848

PATIENT
  Age: 18993 Day
  Sex: Male
  Weight: 73 kg

DRUGS (2)
  1. BUDESONIDE. [Suspect]
     Active Substance: BUDESONIDE
     Indication: ENDOTRACHEAL INTUBATION
     Route: 055
     Dates: start: 20210331, end: 20210331
  2. BUDESONIDE. [Suspect]
     Active Substance: BUDESONIDE
     Indication: GENERAL ANAESTHESIA
     Route: 055
     Dates: start: 20210331, end: 20210331

REACTIONS (3)
  - Dyspnoea [Recovering/Resolving]
  - Hyperhidrosis [Recovering/Resolving]
  - Drug hypersensitivity [Unknown]

NARRATIVE: CASE EVENT DATE: 20210331
